FAERS Safety Report 7024285-0 (Version None)
Quarter: 2010Q4

REPORT INFORMATION
  Report Type: 
  Country: None (occurrence: None)
  Receive Date: 20101001
  Receipt Date: 20100927
  Transmission Date: 20110411
  Serious: Yes (Other)
  Sender: FDA-Public Use
  Company Number: FR-BRISTOL-MYERS SQUIBB COMPANY-15304868

PATIENT
  Age: 41 Year
  Sex: Female

DRUGS (4)
  1. ABILIFY [Suspect]
     Indication: AFFECTIVE DISORDER
     Dosage: STOPPED IN OCT-2008;INITIATED AGAIN IN JAN-2009 TO 15MG;ON UNSPECIFIED DATE DECREASED TO 10MG.
     Route: 048
     Dates: start: 20080513, end: 20100920
  2. ABILIFY [Suspect]
     Indication: MANIA
     Dosage: STOPPED IN OCT-2008;INITIATED AGAIN IN JAN-2009 TO 15MG;ON UNSPECIFIED DATE DECREASED TO 10MG.
     Route: 048
     Dates: start: 20080513, end: 20100920
  3. PAROXETINE HCL [Concomitant]
     Dosage: FOR LONG TIME
  4. TRILEPTAL [Concomitant]
     Dosage: FOR LONG TIME

REACTIONS (9)
  - DEPRESSIVE SYMPTOM [None]
  - GAMMA-GLUTAMYLTRANSFERASE INCREASED [None]
  - HYPERCHOLESTEROLAEMIA [None]
  - HYPERGLYCAEMIA [None]
  - HYPERTRIGLYCERIDAEMIA [None]
  - PSYCHOMOTOR RETARDATION [None]
  - THYROID DISORDER [None]
  - TRANSAMINASES INCREASED [None]
  - WEIGHT INCREASED [None]
